FAERS Safety Report 6710251-9 (Version None)
Quarter: 2010Q2

REPORT INFORMATION
  Report Type: 
  Country: None (occurrence: None)
  Receive Date: 20100430
  Receipt Date: 20100416
  Transmission Date: 20101027
  Serious: Yes (Other)
  Sender: FDA-Public Use
  Company Number: 010766

PATIENT
  Age: 49 Year
  Sex: Female

DRUGS (4)
  1. VIMPAT [Suspect]
     Indication: PARTIAL SEIZURES
     Dosage: (MAXIMUM DOSE: 100 MG; INCREASED OF 50 MG/WEEK.)
     Dates: start: 20090630, end: 20090730
  2. LAMOTRIGINE [Concomitant]
  3. TOPIRAMATE [Concomitant]
  4. CLOBAZAM [Concomitant]

REACTIONS (1)
  - SCLERODERMA [None]
